FAERS Safety Report 6860163-5 (Version None)
Quarter: 2010Q3

REPORT INFORMATION
  Report Type: 
  Country: None (occurrence: None)
  Receive Date: 20100719
  Receipt Date: 20100719
  Transmission Date: 20110219
  Serious: Yes (Hospitalization, Disabling)
  Sender: FDA-Public Use
  Company Number: None

PATIENT
  Age: 44 Year
  Sex: Female

DRUGS (2)
  1. SULFAMETHOXAZOLE AND TRIMETHOPRIM [Suspect]
     Indication: CELLULITIS
     Dosage: 1 TAB EVERY DAY PO
     Route: 048
     Dates: start: 20100511, end: 20100516
  2. PNEUMOCOCCAL VACCINE [Suspect]
     Indication: IMMUNISATION
     Dates: start: 20100505, end: 20100505

REACTIONS (14)
  - ASTHENIA [None]
  - DRUG HYPERSENSITIVITY [None]
  - DRUG TOXICITY [None]
  - DYSPNOEA [None]
  - HYPOKINESIA [None]
  - HYPONATRAEMIA [None]
  - HYPOPHAGIA [None]
  - METABOLIC DISORDER [None]
  - NAUSEA [None]
  - PRURITUS GENERALISED [None]
  - PYREXIA [None]
  - RASH ERYTHEMATOUS [None]
  - SPEECH DISORDER [None]
  - VOMITING [None]
